FAERS Safety Report 5019338-2 (Version None)
Quarter: 2006Q2

REPORT INFORMATION
  Report Type: 
  Country: None (occurrence: None)
  Receive Date: 20060606
  Receipt Date: 20060308
  Transmission Date: 20061013
  Serious: Yes (Other)
  Sender: FDA-Public Use
  Company Number: 440097

PATIENT
  Sex: Male
  Weight: 2.9 kg

DRUGS (4)
  1. ACCUTANE [Suspect]
     Indication: ACNE
     Dosage: TDD WERE TAKEN ON ALTERNATIVE DAYS.
     Dates: start: 19941216, end: 19950502
  2. ACCUTANE [Suspect]
     Dosage: TDD WERE TAKEN ON ALTERNATIVE DAYS.
     Dates: start: 19960726
  3. ACCUTANE [Suspect]
     Dates: start: 19961129
  4. ORTHO TRI-CYCLEN [Concomitant]

REACTIONS (4)
  - ABORTION THREATENED [None]
  - DRUG EXPOSURE DURING PREGNANCY [None]
  - FOETAL MOVEMENTS DECREASED [None]
  - NORMAL NEWBORN [None]
